FAERS Safety Report 18800105 (Version 3)
Quarter: 2021Q1

REPORT INFORMATION
  Report Type: Spontaneous
  Country: US (occurrence: US)
  Receive Date: 20210128
  Receipt Date: 20210311
  Transmission Date: 20210419
  Serious: No
  Sender: FDA-Public Use
  Company Number: US-PFIZER INC-2021050500

PATIENT
  Age: 63 Year
  Sex: Female
  Weight: 70.31 kg

DRUGS (5)
  1. LORBRENA [Suspect]
     Active Substance: LORLATINIB
     Indication: LUNG CANCER METASTATIC
     Dosage: 100 MG
     Dates: start: 202012, end: 20210103
  2. CALCIUM + VITAMIN D3 [Concomitant]
     Active Substance: CALCIUM CARBONATE\CHOLECALCIFEROL
     Indication: BONE DISORDER
     Dosage: 1 DF, 1X/DAY (600 MG PLUS 10MCG OF VIT D3)
     Dates: start: 20210209
  3. LORBRENA [Suspect]
     Active Substance: LORLATINIB
     Dosage: 75 MG, DAILY (THREE 25 MG TABLETS)
     Dates: start: 202101
  4. LORBRENA [Suspect]
     Active Substance: LORLATINIB
     Dosage: 50 MG, DAILY (TWO 25 MG TABLETS DAILY)
     Route: 048
     Dates: start: 20210215
  5. ROSUVASTATIN. [Concomitant]
     Active Substance: ROSUVASTATIN
     Indication: BONE DENSITY DECREASED
     Dosage: 10 MG, DAILY
     Dates: start: 20210104

REACTIONS (5)
  - Periorbital swelling [Unknown]
  - Headache [Recovering/Resolving]
  - Ocular discomfort [Recovering/Resolving]
  - Bone density decreased [Unknown]
  - Blood cholesterol increased [Not Recovered/Not Resolved]

NARRATIVE: CASE EVENT DATE: 20201224
